FAERS Safety Report 10165799 (Version 2)
Quarter: 2014Q4

REPORT INFORMATION
  Report Type: Spontaneous
  Country: US (occurrence: US)
  Receive Date: 20140510
  Receipt Date: 20141205
  Transmission Date: 20150528
  Serious: No
  Sender: FDA-Public Use
  Company Number: US-BRISTOL-MYERS SQUIBB COMPANY-19938786

PATIENT
  Age: 57 Year
  Sex: Male
  Weight: 45.35 kg

DRUGS (5)
  1. HUMALOG [Concomitant]
     Active Substance: INSULIN LISPRO
  2. BYDUREON [Suspect]
     Active Substance: EXENATIDE
     Indication: TYPE 2 DIABETES MELLITUS
     Dosage: NO OF INJ:3.EXP:JUN20L6
     Route: 058
     Dates: start: 201402, end: 201403
  3. AMARYL [Concomitant]
     Active Substance: GLIMEPIRIDE
  4. LANTUS [Concomitant]
     Active Substance: INSULIN GLARGINE
     Dosage: 1DF:62UNITS
  5. GLUCOPHAGE [Concomitant]
     Active Substance: METFORMIN HYDROCHLORIDE

REACTIONS (8)
  - Product quality issue [Unknown]
  - Injection site haemorrhage [Unknown]
  - Injection site nodule [Recovered/Resolved]
  - Injection site haematoma [Recovered/Resolved]
  - Rhinorrhoea [Unknown]
  - Nasopharyngitis [Unknown]
  - Blood glucose increased [Recovered/Resolved]
  - Weight fluctuation [Unknown]

NARRATIVE: CASE EVENT DATE: 201402
